FAERS Safety Report 18171299 (Version 2)
Quarter: 2020Q4

REPORT INFORMATION
  Report Type: Report from Study
  Country: AR (occurrence: AR)
  Receive Date: 20200819
  Receipt Date: 20201227
  Transmission Date: 20210113
  Serious: Yes (Hospitalization, Other)
  Sender: FDA-Public Use
  Company Number: NVSC2020AR227927

PATIENT
  Sex: Male

DRUGS (4)
  1. SANDOSTATIN LAR DEPOT [Suspect]
     Active Substance: OCTREOTIDE ACETATE
     Indication: NEUROENDOCRINE TUMOUR
     Dosage: 30 MG, QMO (EVERY 28 DAYS)
     Route: 065
     Dates: start: 20180813
  2. SANDOSTATIN LAR DEPOT [Suspect]
     Active Substance: OCTREOTIDE ACETATE
  3. SANDOSTATIN LAR DEPOT [Suspect]
     Active Substance: OCTREOTIDE ACETATE
  4. AFINITOR [Suspect]
     Active Substance: EVEROLIMUS
     Indication: NEUROENDOCRINE TUMOUR
     Dosage: 7.5 MG
     Route: 048
     Dates: start: 20200813

REACTIONS (12)
  - Chronic kidney disease [Unknown]
  - Intestinal obstruction [Unknown]
  - Malignant mesenteric neoplasm [Unknown]
  - Metastases to peritoneum [Unknown]
  - Intestinal perforation [Unknown]
  - Metastases to liver [Unknown]
  - Large intestine perforation [Unknown]
  - Internal haemorrhage [Unknown]
  - Small intestine carcinoma [Unknown]
  - Peritonitis [Unknown]
  - Speech disorder [Unknown]
  - Thrombosis [Unknown]
